FAERS Safety Report 15134966 (Version 1)
Quarter: 2018Q3

REPORT INFORMATION
  Report Type: Spontaneous
  Country: US (occurrence: US)
  Receive Date: 20180616
  Receipt Date: 20180616
  Transmission Date: 20181010
  Serious: Yes (Hospitalization)
  Sender: FDA-Public Use
  Company Number: None

PATIENT
  Age: 9 Year
  Sex: Female
  Weight: 27 kg

DRUGS (5)
  1. DOXORUBICIN HYDROCHLORIDE. [Suspect]
     Active Substance: DOXORUBICIN HYDROCHLORIDE
     Dates: end: 20130330
  2. METHOTREXATE. [Suspect]
     Active Substance: METHOTREXATE
     Dates: end: 20130329
  3. VINCRISTINE SULFATE. [Suspect]
     Active Substance: VINCRISTINE SULFATE
     Dates: end: 20130329
  4. PREDNISONE. [Suspect]
     Active Substance: PREDNISONE
     Dates: end: 20130405
  5. CYCLOPHOSPHAMIDE. [Suspect]
     Active Substance: CYCLOPHOSPHAMIDE
     Dates: end: 20130402

REACTIONS (8)
  - Febrile neutropenia [None]
  - Enteritis [None]
  - Appendicitis [None]
  - Gastrointestinal wall thickening [None]
  - Colitis [None]
  - Abdominal pain lower [None]
  - Gastrointestinal inflammation [None]
  - Pelvic fluid collection [None]

NARRATIVE: CASE EVENT DATE: 20130410
